FAERS Safety Report 6266432-4 (Version None)
Quarter: 2009Q3

REPORT INFORMATION
  Report Type: 
  Country: None (occurrence: None)
  Receive Date: 20090709
  Receipt Date: 20090624
  Transmission Date: 20100115
  Serious: Yes (Death)
  Sender: FDA-Public Use
  Company Number: PERC20090071

PATIENT
  Age: 31 Year
  Sex: Male

DRUGS (6)
  1. OXYCODONE AND ACETAMINOPHEN [Suspect]
     Indication: BACK PAIN
     Dosage: TWO TABLETS TID,
     Dates: start: 20080901
  2. NAPROXEN [Concomitant]
  3. TERAZOSIN [Concomitant]
  4. METOPROLOL TARTRATE [Concomitant]
  5. SERTRALINE [Concomitant]
  6. CLONIDINE [Concomitant]

REACTIONS (12)
  - ACCIDENTAL DEATH [None]
  - AORTIC ARTERIOSCLEROSIS [None]
  - ARTERIOSCLEROSIS CORONARY ARTERY [None]
  - CARDIOMEGALY [None]
  - DRUG TOXICITY [None]
  - GASTRITIS HAEMORRHAGIC [None]
  - HYPERTENSIVE HEART DISEASE [None]
  - LEFT VENTRICULAR HYPERTROPHY [None]
  - MALAISE [None]
  - NEPHROSCLEROSIS [None]
  - PULMONARY CONGESTION [None]
  - RESPIRATORY ARREST [None]
